FAERS Safety Report 8165468-6 (Version None)
Quarter: 2012Q1

REPORT INFORMATION
  Report Type: 
  Country: None (occurrence: None)
  Receive Date: 20120223
  Receipt Date: 20120223
  Transmission Date: 20120608
  Serious: Yes (Other)
  Sender: FDA-Public Use
  Company Number: None

PATIENT
  Age: 45 Year
  Sex: Female
  Weight: 152.4086 kg

DRUGS (2)
  1. FERAHEME [Suspect]
     Indication: IRON DEFICIENCY
     Dosage: 510 MG Q 2 WK IV
     Route: 042
     Dates: start: 20120207
  2. FERAHEME [Suspect]
     Indication: NEPHROGENIC ANAEMIA
     Dosage: 510 MG Q 2 WK IV
     Route: 042
     Dates: start: 20120207

REACTIONS (5)
  - ARTHRALGIA [None]
  - BLOOD PRESSURE INCREASED [None]
  - DYSPNOEA [None]
  - CHEST PAIN [None]
  - FLUSHING [None]
